FAERS Safety Report 9209904 (Version 1)
Quarter: 2013Q2

REPORT INFORMATION
  Report Type: Spontaneous
  Country: US (occurrence: None)
  Receive Date: 20130403
  Receipt Date: 20130403
  Transmission Date: 20140414
  Serious: Yes (Hospitalization)
  Sender: FDA-Public Use
  Company Number: None

PATIENT
  Age: 65 Year
  Sex: Female
  Weight: 86.3 kg

DRUGS (2)
  1. CYCLOPHOSPHAMIDE [Suspect]
  2. DOCETAXEL (TAXOTERE) [Suspect]

REACTIONS (18)
  - Depressed level of consciousness [None]
  - Livedo reticularis [None]
  - Urinary incontinence [None]
  - Faecal incontinence [None]
  - Blood glucose increased [None]
  - Respiratory distress [None]
  - Cardiac arrest [None]
  - Neutropenia [None]
  - White blood cell count decreased [None]
  - Septic shock [None]
  - Acute respiratory failure [None]
  - Acute myocardial infarction [None]
  - Heart rate increased [None]
  - Renal failure acute [None]
  - Rhabdomyolysis [None]
  - Brain injury [None]
  - Multi-organ failure [None]
  - Staphylococcus test positive [None]
